FAERS Safety Report 10203866 (Version 1)
Quarter: 2014Q2

REPORT INFORMATION
  Report Type: Spontaneous
  Country: US (occurrence: US)
  Receive Date: 20140529
  Receipt Date: 20140529
  Transmission Date: 20141212
  Serious: No
  Sender: FDA-Public Use
  Company Number: US-PFIZER INC-2014143275

PATIENT
  Sex: Male
  Weight: 72.56 kg

DRUGS (3)
  1. VIAGRA [Suspect]
     Indication: ERECTILE DYSFUNCTION
     Dosage: FULL 100 MG TABLET
     Dates: start: 2013
  2. VIAGRA [Suspect]
     Dosage: CUTTING 100 MG TABLET INTO HALF
  3. DILTIAZEM [Concomitant]
     Indication: BLOOD PRESSURE ABNORMAL
     Dosage: 180 MG, DAILY

REACTIONS (1)
  - Drug effect incomplete [Unknown]
